FAERS Safety Report 8492547-6 (Version None)
Quarter: 2012Q3

REPORT INFORMATION
  Report Type: 
  Country: None (occurrence: None)
  Receive Date: 20120706
  Receipt Date: 20120703
  Transmission Date: 20120928
  Serious: Yes (Other)
  Sender: FDA-Public Use
  Company Number: BR-ROCHE-792637

PATIENT
  Sex: Female
  Weight: 85 kg

DRUGS (13)
  1. ACETAMINOPHEN [Concomitant]
     Indication: PREMEDICATION
  2. MABTHERA [Suspect]
     Dates: start: 20110927, end: 20111010
  3. NORIPURUM FOLICO [Concomitant]
  4. GLYBURIDE [Concomitant]
  5. PHENERGAN [Concomitant]
     Indication: PREMEDICATION
  6. PANTOPRAZOLE [Concomitant]
  7. DIOVAN [Concomitant]
  8. NIFEDIPINE [Concomitant]
  9. CALCORT [Concomitant]
  10. MABTHERA [Suspect]
     Indication: RHEUMATOID ARTHRITIS
     Dates: start: 20091201, end: 20091201
  11. MABTHERA [Suspect]
  12. LEVOTHYROXINE SODIUM [Concomitant]
  13. CALCORT [Concomitant]

REACTIONS (9)
  - FALL [None]
  - RASH [None]
  - DYSURIA [None]
  - PNEUMONIA [None]
  - ANAEMIA [None]
  - HYPERTENSION [None]
  - THYROID NEOPLASM [None]
  - HYPOTENSION [None]
  - LOWER LIMB FRACTURE [None]
